FAERS Safety Report 11137406 (Version 5)
Quarter: 2015Q3

REPORT INFORMATION
  Report Type: Spontaneous
  Country: US (occurrence: US)
  Receive Date: 20150526
  Receipt Date: 20150825
  Transmission Date: 20151125
  Serious: Yes (Death, Hospitalization)
  Sender: FDA-Public Use
  Company Number: US-PFIZER INC-2015172079

PATIENT
  Age: 80 Year
  Sex: Female
  Weight: 67 kg

DRUGS (3)
  1. DILAUDID [Concomitant]
     Active Substance: HYDROMORPHONE HYDROCHLORIDE
     Dosage: UNK
  2. SUTENT [Suspect]
     Active Substance: SUNITINIB MALATE
     Indication: THYMOMA
     Dosage: 50 MG, CYCLIC (28 DAYS ON/14 DAYS OFF)
     Route: 048
     Dates: start: 20150501, end: 20150716
  3. ZOFRAN [Concomitant]
     Active Substance: ONDANSETRON HYDROCHLORIDE
     Dosage: UNK

REACTIONS (13)
  - Oedema [Unknown]
  - Glossodynia [Unknown]
  - Peripheral swelling [Recovered/Resolved]
  - Product use issue [Unknown]
  - Hypophagia [Unknown]
  - Nausea [Unknown]
  - Large intestine perforation [Fatal]
  - Asthenia [Unknown]
  - Diarrhoea [Not Recovered/Not Resolved]
  - Hypertension [Unknown]
  - Decreased appetite [Recovering/Resolving]
  - Dysgeusia [Unknown]
  - Fatigue [Recovering/Resolving]

NARRATIVE: CASE EVENT DATE: 201505
